FAERS Safety Report 11219540 (Version 4)
Quarter: 2025Q4

REPORT INFORMATION
  Report Type: Spontaneous
  Country: EU (occurrence: EU)
  Receive Date: 20150625
  Receipt Date: 20251216
  Transmission Date: 20260117
  Serious: Yes (Death, Other)
  Sender: INCYTE
  Company Number: EU-002147023-PHHY2015FR070961

PATIENT
  Age: 60 Year

DRUGS (3)
  1. RUXOLITINIB [Suspect]
     Active Substance: RUXOLITINIB
     Indication: Myelofibrosis
     Dosage: 10 MG, BID
     Route: 065
  2. IDARUBICIN [Suspect]
     Active Substance: IDARUBICIN
     Indication: Myelofibrosis
     Dosage: 12 MG/M2, QD
     Route: 065
  3. CYTARABINE [Suspect]
     Active Substance: CYTARABINE
     Indication: Myelofibrosis
     Dosage: 200 MG/M2, QD
     Route: 065

REACTIONS (2)
  - Bone marrow failure [Fatal]
  - Intestinal obstruction [Unknown]
